FAERS Safety Report 22386599 (Version 1)
Quarter: 2023Q2

REPORT INFORMATION
  Report Type: Spontaneous
  Country: US (occurrence: US)
  Receive Date: 20230531
  Receipt Date: 20230531
  Transmission Date: 20230721
  Serious: Yes (Other)
  Sender: FDA-Public Use
  Company Number: US-BAYER-2023A070957

PATIENT
  Age: 58 Year
  Sex: Male

DRUGS (1)
  1. NAPROXEN SODIUM [Suspect]
     Active Substance: NAPROXEN SODIUM
     Dosage: UNK

REACTIONS (10)
  - Fibrillary glomerulonephritis [None]
  - Systemic lupus erythematosus [None]
  - Toxic epidermal necrolysis [None]
  - Stevens-Johnson syndrome [None]
  - Rash [None]
  - Pyrexia [None]
  - Night sweats [None]
  - Arthralgia [None]
  - Encephalopathy [None]
  - Acute kidney injury [None]
